FAERS Safety Report 24952381 (Version 1)
Quarter: 2025Q1

REPORT INFORMATION
  Report Type: Spontaneous
  Country: DE (occurrence: DE)
  Receive Date: 20250210
  Receipt Date: 20250210
  Transmission Date: 20250409
  Serious: Yes (Other)
  Sender: ELI LILLY AND COMPANY
  Company Number: DE-EMB-M202402423-1

PATIENT
  Age: 38 Year
  Sex: Female
  Weight: 68.4 kg

DRUGS (2)
  1. OMVOH [Suspect]
     Active Substance: MIRIKIZUMAB-MRKZ
     Indication: Colitis ulcerative
     Dosage: 300 MG, MONTHLY (1/M)
     Route: 064
  2. FOLIC ACID [Concomitant]
     Active Substance: FOLIC ACID
     Indication: Prophylaxis of neural tube defect
     Dates: start: 202401, end: 202403

REACTIONS (2)
  - Abortion spontaneous [Recovered/Resolved]
  - Exposure during pregnancy [Recovered/Resolved]

NARRATIVE: CASE EVENT DATE: 20240301
